FAERS Safety Report 4495976-0 (Version None)
Quarter: 2004Q4

REPORT INFORMATION
  Report Type: 
  Country: None (occurrence: None)
  Receive Date: 20040927
  Receipt Date: 20040608
  Transmission Date: 20050328
  Serious: Yes (Other)
  Sender: FDA-Public Use
  Company Number: USA040567847

PATIENT
  Age: 15 Year
  Sex: Male
  Weight: 54 kg

DRUGS (1)
  1. STRATTERA [Suspect]
     Indication: ATTENTION DEFICIT/HYPERACTIVITY DISORDER
     Dosage: 80 MG DAY
     Dates: start: 20040429, end: 20040508

REACTIONS (2)
  - PRESCRIBED OVERDOSE [None]
  - TACHYCARDIA [None]
